FAERS Safety Report 19491036 (Version 1)
Quarter: 2021Q3

REPORT INFORMATION
  Report Type: Spontaneous
  Country: GB (occurrence: GB)
  Receive Date: 20210705
  Receipt Date: 20210705
  Transmission Date: 20211014
  Serious: Yes (Other)
  Sender: FDA-Public Use
  Company Number: GB-SUN PHARMACEUTICAL INDUSTRIES LTD-2021RR-303141

PATIENT
  Age: 7 Decade
  Sex: Female
  Weight: 72.57 kg

DRUGS (1)
  1. LANSOPRAZOLE. [Suspect]
     Active Substance: LANSOPRAZOLE
     Indication: ILL-DEFINED DISORDER
     Dosage: ONE A DAY
     Route: 048
     Dates: start: 20210404, end: 20210601

REACTIONS (1)
  - Adverse drug reaction [Recovered/Resolved with Sequelae]

NARRATIVE: CASE EVENT DATE: 20210531
